FAERS Safety Report 9938081 (Version 1)
Quarter: 2014Q1

REPORT INFORMATION
  Report Type: Spontaneous
  Country: US (occurrence: US)
  Receive Date: 20140303
  Receipt Date: 20140303
  Transmission Date: 20141002
  Serious: No
  Sender: FDA-Public Use
  Company Number: US-BAYER-2014-032139

PATIENT
  Age: 55 Year
  Sex: 0

DRUGS (1)
  1. GADAVIST [Suspect]
     Dosage: UNK UNK, ONCE

REACTIONS (2)
  - Urticaria [None]
  - Pruritus [None]
